FAERS Safety Report 7482351-X (Version None)
Quarter: 2011Q2

REPORT INFORMATION
  Report Type: 
  Country: None (occurrence: None)
  Receive Date: 20110516
  Receipt Date: 20110505
  Transmission Date: 20111010
  Serious: Yes (Other)
  Sender: FDA-Public Use
  Company Number: US-PFIZER INC-2011097777

PATIENT

DRUGS (1)
  1. VORICONAZOLE [Suspect]
     Dosage: 8 MG/KG, UNK

REACTIONS (2)
  - DRUG INEFFECTIVE [None]
  - ASPERGILLOSIS [None]
